FAERS Safety Report 10430693 (Version 2)
Quarter: 2014Q4

REPORT INFORMATION
  Report Type: Spontaneous
  Country: US (occurrence: US)
  Receive Date: 20140904
  Receipt Date: 20141015
  Transmission Date: 20150528
  Serious: Yes (Death)
  Sender: FDA-Public Use
  Company Number: US-BRISTOL-MYERS SQUIBB COMPANY-21360664

PATIENT
  Age: 74 Year
  Sex: Female

DRUGS (27)
  1. ALBUTEROL. [Concomitant]
     Active Substance: ALBUTEROL
  2. LEVEMIR [Concomitant]
     Active Substance: INSULIN DETEMIR
  3. ZYRTEC [Concomitant]
     Active Substance: CETIRIZINE HYDROCHLORIDE
  4. VICODIN [Concomitant]
     Active Substance: ACETAMINOPHEN\HYDROCODONE BITARTRATE
  5. BISOPROLOL [Concomitant]
     Active Substance: BISOPROLOL
  6. HYDROCODONE [Concomitant]
     Active Substance: HYDROCODONE
  7. INSULIN [Concomitant]
     Active Substance: INSULIN NOS
  8. ONDANSETRON [Concomitant]
     Active Substance: ONDANSETRON
  9. VITAMIN B12 [Concomitant]
     Active Substance: CYANOCOBALAMIN
  10. CALCIUM CITRATE [Concomitant]
     Active Substance: CALCIUM CITRATE
  11. ADVAIR HFA [Concomitant]
     Active Substance: FLUTICASONE PROPIONATE\SALMETEROL XINAFOATE
  12. CALCIUM [Concomitant]
     Active Substance: CALCIUM
  13. CENTRUM [Concomitant]
     Active Substance: VITAMINS
  14. COZAAR [Concomitant]
     Active Substance: LOSARTAN POTASSIUM
  15. MAGNESIUM [Concomitant]
     Active Substance: MAGNESIUM
  16. TRENTAL [Concomitant]
     Active Substance: PENTOXIFYLLINE
  17. AMPICILLIN [Concomitant]
     Active Substance: AMPICILLIN
  18. BYETTA [Suspect]
     Active Substance: EXENATIDE
     Dates: start: 20080825, end: 20120213
  19. VYTORIN [Concomitant]
     Active Substance: EZETIMIBE\SIMVASTATIN
  20. NEXIUM [Concomitant]
     Active Substance: ESOMEPRAZOLE MAGNESIUM
  21. MULTIVITAMIN [Concomitant]
     Active Substance: VITAMINS
  22. ALEVE [Concomitant]
     Active Substance: NAPROXEN SODIUM
  23. SPIRIVA [Concomitant]
     Active Substance: TIOTROPIUM BROMIDE MONOHYDRATE
  24. ASPIRIN. [Concomitant]
     Active Substance: ASPIRIN
  25. METFORMIN HCL [Concomitant]
     Active Substance: METFORMIN HYDROCHLORIDE
  26. HUMALOG [Concomitant]
     Active Substance: INSULIN LISPRO
  27. VITAMIN D [Concomitant]
     Active Substance: CHOLECALCIFEROL

REACTIONS (1)
  - Pancreatic carcinoma [Fatal]

NARRATIVE: CASE EVENT DATE: 20120124
